FAERS Safety Report 8527975 (Version 6)
Quarter: 2012Q4

REPORT INFORMATION
  Report Type: 
  Country: US (occurrence: US)
  Receive Date: 20120424
  Receipt Date: 20121105
  Transmission Date: 20130627
  Serious: Yes (Hospitalization)
  Sender: FDA-Public Use
  Company Number: US-ALEXION-A201200719

PATIENT
  Age: 79 Year
  Sex: Male
  Weight: 74.4 kg

DRUGS (2)
  1. SOLIRIS 300MG [Suspect]
     Indication: PAROXYSMAL NOCTURNAL HAEMOGLOBINURIA
     Dosage: 600 mg, UNK
     Route: 042
     Dates: start: 20071012
  2. SOLIRIS 300MG [Suspect]
     Dosage: 900 mg, q2w
     Route: 042
     Dates: end: 20120406

REACTIONS (3)
  - Diverticular perforation [Recovered/Resolved]
  - Cerebrovascular accident [Recovered/Resolved]
  - Staphylococcal infection [Recovered/Resolved]
